FAERS Safety Report 5175644-2 (Version None)
Quarter: 2006Q4

REPORT INFORMATION
  Report Type: 
  Country: None (occurrence: None)
  Receive Date: 20061215
  Receipt Date: 20060719
  Transmission Date: 20070319
  Serious: No
  Sender: FDA-Public Use
  Company Number: US-AMGEN-KDL186891

PATIENT
  Sex: Female

DRUGS (2)
  1. ENBREL [Suspect]
     Indication: RHEUMATOID ARTHRITIS
  2. TESTOSTERONE [Concomitant]
     Route: 061
     Dates: start: 20060719

REACTIONS (3)
  - ANXIETY [None]
  - HEART RATE INCREASED [None]
  - MIOSIS [None]
